FAERS Safety Report 16267256 (Version 1)
Quarter: 2019Q2

REPORT INFORMATION
  Report Type: Spontaneous
  Country: US (occurrence: US)
  Receive Date: 20190502
  Receipt Date: 20190502
  Transmission Date: 20190711
  Serious: Yes (Hospitalization, Other)
  Sender: FDA-Public Use
  Company Number: US-BEH-2019101733

PATIENT
  Age: 69 Year
  Sex: Female

DRUGS (4)
  1. HAEGARDA [Suspect]
     Active Substance: HUMAN C1-ESTERASE INHIBITOR
     Indication: PROPHYLAXIS
  2. HAEGARDA [Suspect]
     Active Substance: HUMAN C1-ESTERASE INHIBITOR
     Indication: PEMPHIGUS
     Dosage: 4000 IU, BIW (EVERY 3-4 DAYS)
     Route: 058
     Dates: start: 201710
  3. PROTONIX [Concomitant]
     Active Substance: PANTOPRAZOLE SODIUM
  4. DANAZOL. [Concomitant]
     Active Substance: DANAZOL

REACTIONS (11)
  - Hemiparesis [Unknown]
  - Loss of consciousness [Unknown]
  - Eating disorder [Unknown]
  - Abdominal discomfort [Unknown]
  - Cerebrovascular accident [Unknown]
  - Peripheral swelling [Unknown]
  - Anxiety [Unknown]
  - Dehydration [Unknown]
  - Chest pain [Unknown]
  - Dysphagia [Unknown]
  - Hereditary angioedema [Unknown]

NARRATIVE: CASE EVENT DATE: 2019
